FAERS Safety Report 20393781 (Version 1)
Quarter: 2022Q1

REPORT INFORMATION
  Report Type: Spontaneous
  Country: GB (occurrence: GB)
  Receive Date: 20220128
  Receipt Date: 20220128
  Transmission Date: 20220423
  Serious: Yes (Congenital Anomaly)
  Sender: FDA-Public Use
  Company Number: None

PATIENT
  Sex: Male

DRUGS (9)
  1. ONDANSETRON [Suspect]
     Active Substance: ONDANSETRON
     Indication: Vomiting
     Route: 064
  2. CYCLIZINE [Concomitant]
     Active Substance: CYCLIZINE
     Indication: Vomiting
     Dosage: 14
     Route: 064
  3. PREDNISOLONE [Concomitant]
     Active Substance: PREDNISOLONE
     Indication: Vomiting
     Route: 064
  4. THIAMINE [Concomitant]
     Active Substance: THIAMINE
     Indication: Vomiting
     Dosage: 14
     Route: 064
  5. FOLIC ACID [Concomitant]
     Active Substance: FOLIC ACID
     Indication: Vomiting
     Dosage: 14
     Route: 064
  6. METOCLOPRAMIDE [Concomitant]
     Active Substance: METOCLOPRAMIDE
     Indication: Vomiting
     Dosage: 55
     Route: 064
  7. PROCHLORPERAZINE [Concomitant]
     Active Substance: PROCHLORPERAZINE
     Indication: Vomiting
     Dosage: 14
     Route: 064
  8. RANITIDINE [Concomitant]
     Active Substance: RANITIDINE
     Indication: Vomiting
     Dosage: 14
     Route: 064
  9. ONDANSETRON [Concomitant]
     Active Substance: ONDANSETRON
     Indication: Vomiting
     Dosage: 14
     Route: 064

REACTIONS (2)
  - Arteriovenous malformation [Not Recovered/Not Resolved]
  - Foetal exposure during pregnancy [Unknown]
